FAERS Safety Report 10401720 (Version 1)
Quarter: 2014Q3

REPORT INFORMATION
  Report Type: Spontaneous
  Country: US (occurrence: None)
  Receive Date: 20140819
  Receipt Date: 20140819
  Transmission Date: 20150326
  Serious: No
  Sender: FDA-Public Use
  Company Number: None

PATIENT
  Age: 24 Year
  Sex: Female
  Weight: 76.2 kg

DRUGS (2)
  1. DULOXETINE [Suspect]
     Active Substance: DULOXETINE
     Indication: DEPRESSION
     Route: 048
  2. DULOXETINE [Suspect]
     Active Substance: DULOXETINE
     Indication: ANXIETY
     Route: 048

REACTIONS (7)
  - Anxiety [None]
  - Depression [None]
  - Panic attack [None]
  - Product substitution issue [None]
  - Mood swings [None]
  - Crying [None]
  - Drug ineffective [None]

NARRATIVE: CASE EVENT DATE: 20140301
